FAERS Safety Report 8495436-6 (Version None)
Quarter: 2012Q3

REPORT INFORMATION
  Report Type: 
  Country: None (occurrence: None)
  Receive Date: 20120709
  Receipt Date: 20120703
  Transmission Date: 20120928
  Serious: Yes (Death, Other)
  Sender: FDA-Public Use
  Company Number: US-PFIZER INC-2012125999

PATIENT
  Sex: Female

DRUGS (4)
  1. LASIX [Concomitant]
     Indication: PULMONARY HYPERTENSION
     Dosage: UNK
  2. REVATIO [Suspect]
     Indication: PULMONARY ARTERIAL HYPERTENSION
     Dosage: 20 MG, 3X/DAY
     Route: 048
     Dates: start: 20090401, end: 20120401
  3. LOTENSIN [Concomitant]
     Indication: HYPERTENSION
     Dosage: UNK
  4. COLCHICINE [Concomitant]
     Indication: GOUT
     Dosage: UNK

REACTIONS (5)
  - SMALL CELL LUNG CANCER STAGE UNSPECIFIED [None]
  - DISEASE PROGRESSION [None]
  - RESPIRATORY FAILURE [None]
  - SEPSIS [None]
  - PNEUMONIA [None]
